FAERS Safety Report 5142454-1 (Version None)
Quarter: 2006Q4

REPORT INFORMATION
  Report Type: 
  Country: None (occurrence: None)
  Receive Date: 20061027
  Receipt Date: 20061012
  Transmission Date: 20070319
  Serious: Yes (Other)
  Sender: FDA-Public Use
  Company Number: US-CVT-062073

PATIENT
  Age: 73 Year
  Sex: Male
  Weight: 110.2 kg

DRUGS (18)
  1. RANEXA [Suspect]
     Indication: ANGINA PECTORIS
     Dosage: 500 MG, BID
     Dates: start: 20060731, end: 20060911
  2. RANEXA [Suspect]
     Indication: ANGINA PECTORIS
     Dosage: 500 MG, BID
     Dates: start: 20060911, end: 20060921
  3. RANEXA [Suspect]
     Indication: ANGINA PECTORIS
     Dosage: 500 MG, BID
     Dates: start: 20060911, end: 20060921
  4. METOPROLOL TARTRATE [Concomitant]
  5. PLAVIX [Concomitant]
  6. CRESTOR [Concomitant]
  7. COZAAR [Concomitant]
  8. ASPIRIN [Concomitant]
  9. AVANDIA [Concomitant]
  10. LASIX [Concomitant]
  11. GLYBURIDE [Concomitant]
  12. IMDUR [Concomitant]
  13. NITROGLYCERIN [Concomitant]
  14. METFORMIN [Concomitant]
  15. FOLIC ACID [Concomitant]
  16. MVI (VITAMINS NOS) [Concomitant]
  17. CALCIUM (CALCIUM CARBONATE, CALCIUM LACTOGLUCONATE) [Concomitant]
  18. FISH OIL [Concomitant]

REACTIONS (5)
  - CONFUSIONAL STATE [None]
  - DYSPNOEA [None]
  - FALL [None]
  - FIBULA FRACTURE [None]
  - SYNCOPE [None]
